FAERS Safety Report 5931787-4 (Version None)
Quarter: 2008Q4

REPORT INFORMATION
  Report Type: 
  Country: None (occurrence: None)
  Receive Date: 20081027
  Receipt Date: 20081015
  Transmission Date: 20090506
  Serious: Yes (Hospitalization)
  Sender: FDA-Public Use
  Company Number: GB-WYE-H06510208

PATIENT
  Age: 70 Year
  Sex: Male

DRUGS (3)
  1. AMIODARONE HCL [Suspect]
     Indication: ATRIAL FIBRILLATION
     Dosage: UNSPECIFIED
     Dates: start: 19980901, end: 19990201
  2. AMIODARONE HCL [Suspect]
     Dosage: UNSPECIFIED
     Dates: start: 20020401, end: 20060101
  3. AMIODARONE HCL [Suspect]
     Dosage: UNSPECIFIED
     Dates: start: 20060401, end: 20070601

REACTIONS (2)
  - DEPRESSION [None]
  - PSYCHOTIC DISORDER [None]
